FAERS Safety Report 13950500 (Version 1)
Quarter: 2017Q3

REPORT INFORMATION
  Report Type: Report from Study
  Country: CN (occurrence: CN)
  Receive Date: 20170908
  Receipt Date: 20170908
  Transmission Date: 20171128
  Serious: Yes (Death, Other)
  Sender: FDA-Public Use
  Company Number: CN-MYLANLABS-2017M1055435

PATIENT
  Age: 61 Year
  Sex: Male

DRUGS (4)
  1. DEXAMETHASONE. [Suspect]
     Active Substance: DEXAMETHASONE
     Indication: ANGIOCENTRIC LYMPHOMA
     Dosage: 20MG DRIP ON DAY 1 TO DAY 3
     Route: 042
  2. GEMCITABINE [Suspect]
     Active Substance: GEMCITABINE\GEMCITABINE HYDROCHLORIDE
     Indication: ANGIOCENTRIC LYMPHOMA
     Dosage: 1000 MG/M2 DRIP ON DAY 1 AND DAY 8
     Route: 042
  3. PEGASPARGASE [Suspect]
     Active Substance: PEGASPARGASE
     Indication: ANGIOCENTRIC LYMPHOMA
     Dosage: 2500 U/M2 ON DAY 1
     Route: 030
  4. METHOTREXATE. [Suspect]
     Active Substance: METHOTREXATE
     Indication: ANGIOCENTRIC LYMPHOMA
     Dosage: 3000 MG/M2 FOR 12 HOURS ON DAY 1
     Route: 042

REACTIONS (2)
  - Vomiting [Unknown]
  - Electrolyte imbalance [Fatal]
